FAERS Safety Report 6434690-9 (Version None)
Quarter: 2009Q4

REPORT INFORMATION
  Report Type: 
  Country: None (occurrence: None)
  Receive Date: 20091109
  Receipt Date: 20091109
  Transmission Date: 20100525
  Serious: Yes (Life-Threatening)
  Sender: FDA-Public Use
  Company Number: None

PATIENT
  Sex: Female
  Weight: 73.0291 kg

DRUGS (1)
  1. BACTRIM DS [Suspect]
     Indication: SINUSITIS
     Dosage: ONE TABLET TWICE DAILY PO
     Route: 048
     Dates: start: 20090519, end: 20090519

REACTIONS (5)
  - ERYTHEMA [None]
  - EYE IRRITATION [None]
  - FACE OEDEMA [None]
  - SKIN EXFOLIATION [None]
  - SUNBURN [None]
